FAERS Safety Report 9961232 (Version 2)
Quarter: 2014Q1

REPORT INFORMATION
  Report Type: Spontaneous
  Country: DE (occurrence: DE)
  Receive Date: 20140305
  Receipt Date: 20140313
  Transmission Date: 20141002
  Serious: Yes (Death, Other)
  Sender: FDA-Public Use
  Company Number: DE-SA-2014SA023747

PATIENT
  Age: 51 Year
  Sex: Female

DRUGS (6)
  1. FLUDARA [Suspect]
     Indication: CHRONIC LYMPHOCYTIC LEUKAEMIA
     Dosage: DURATION OF EACH APPLICATION :30 MIN.
     Route: 042
     Dates: start: 20140120, end: 20140122
  2. ENDOXAN [Concomitant]
     Indication: LEUKOPENIA
     Route: 042
     Dates: start: 20140120, end: 20140122
  3. MESNA [Concomitant]
     Route: 042
     Dates: start: 20140120, end: 20140122
  4. DEXAMETHASONE [Concomitant]
     Route: 042
     Dates: start: 20140120, end: 20140122
  5. KEVATRIL [Concomitant]
     Route: 042
     Dates: start: 20140120, end: 20140122
  6. MIDAZOLAM [Concomitant]
     Dates: start: 201402, end: 20140218

REACTIONS (10)
  - Haemolysis [Fatal]
  - Circulatory collapse [Fatal]
  - Renal failure [Fatal]
  - General physical health deterioration [Unknown]
  - Anaemia macrocytic [Unknown]
  - Decreased appetite [Unknown]
  - Faeces pale [Unknown]
  - Chromaturia [Unknown]
  - Jaundice [Unknown]
  - Blood lactate dehydrogenase increased [Unknown]
